FAERS Safety Report 12935523 (Version 1)
Quarter: 2020Q3

REPORT INFORMATION
  Report Type: Report from Study
  Country: FI (occurrence: FI)
  Receive Date: 20161114
  Receipt Date: 20161114
  Transmission Date: 20201104
  Serious: Yes (Hospitalization)
  Sender: FDA-Public Use
  Company Number: FI-ROCHE-1647293

PATIENT
  Age: 45 Year
  Sex: Male
  Weight: 110 kg

DRUGS (1)
  1. ALECTINIB. [Suspect]
     Active Substance: ALECTINIB
     Indication: LUNG NEOPLASM MALIGNANT
     Route: 048
     Dates: start: 20150101

REACTIONS (4)
  - Dry skin [Unknown]
  - Erysipelas [Recovered/Resolved]
  - Eczema [Unknown]
  - Skin infection [Recovered/Resolved]

NARRATIVE: CASE EVENT DATE: 2015
